FAERS Safety Report 13939856 (Version 2)
Quarter: 2017Q3

REPORT INFORMATION
  Report Type: Spontaneous
  Country: TT (occurrence: TT)
  Receive Date: 20170906
  Receipt Date: 20170912
  Transmission Date: 20171127
  Serious: Yes (Other)
  Sender: FDA-Public Use
  Company Number: TT-ROCHE-1988496

PATIENT
  Sex: Female

DRUGS (2)
  1. REDITUX [Suspect]
     Active Substance: RITUXIMAB
     Indication: NON-HODGKIN^S LYMPHOMA UNSPECIFIED HISTOLOGY INDOLENT
     Route: 065
  2. MABTHERA [Suspect]
     Active Substance: RITUXIMAB
     Indication: NON-HODGKIN^S LYMPHOMA UNSPECIFIED HISTOLOGY INDOLENT
     Dosage: (6 CYCLES)
     Route: 042

REACTIONS (3)
  - Infusion related reaction [Unknown]
  - Anaphylactic reaction [Recovered/Resolved]
  - Chills [Unknown]
